FAERS Safety Report 10735062 (Version 2)
Quarter: 2015Q1

REPORT INFORMATION
  Report Type: Report from Study
  Country: PT (occurrence: PT)
  Receive Date: 20150123
  Receipt Date: 20150129
  Transmission Date: 20150721
  Serious: Yes (Death)
  Sender: FDA-Public Use
  Company Number: PT-SA-2013SA107012

PATIENT

DRUGS (5)
  1. CAMPATH [Suspect]
     Active Substance: ALEMTUZUMAB
     Indication: MYCOSIS FUNGOIDES
     Dosage: CAMPATH WAS GIVEN THRICE A WEEK FOR 12 WEEKS
     Route: 041
     Dates: start: 201310
  2. VALGANCICLOVIR [Concomitant]
     Active Substance: VALGANCICLOVIR
     Indication: PROPHYLAXIS
     Dates: start: 201310
  3. TRIMETHOPRIM/SULFAMETHOXAZOLE [Concomitant]
     Indication: PROPHYLAXIS
     Dosage: DOSE: 800 MG + 160 MG
     Dates: start: 201310
  4. CAMPATH [Suspect]
     Active Substance: ALEMTUZUMAB
     Indication: MYCOSIS FUNGOIDES
     Dosage: CAMPATH WAS GIVEN THRICE A WEEK FOR 12 WEEKS
     Route: 041
     Dates: start: 201310
  5. CAMPATH [Suspect]
     Active Substance: ALEMTUZUMAB
     Indication: MYCOSIS FUNGOIDES
     Dosage: CAMPATH WAS GIVEN THRICE A WEEK FOR 12 WEEKS
     Route: 041
     Dates: start: 201310

REACTIONS (2)
  - Death [Fatal]
  - Off label use [Unknown]

NARRATIVE: CASE EVENT DATE: 20141230
